FAERS Safety Report 5937654-4 (Version None)
Quarter: 2008Q4

REPORT INFORMATION
  Report Type: 
  Country: None (occurrence: None)
  Receive Date: 20081029
  Receipt Date: 20081023
  Transmission Date: 20090506
  Serious: Yes (Death)
  Sender: FDA-Public Use
  Company Number: 2008-04013

PATIENT
  Age: 65 Year
  Sex: Male

DRUGS (2)
  1. VELCADE [Suspect]
     Indication: MANTLE CELL LYMPHOMA
  2. DEXAMETHASONE 0.5MG TAB [Concomitant]

REACTIONS (1)
  - FALL [None]
